FAERS Safety Report 5207687-4 (Version None)
Quarter: 2007Q1

REPORT INFORMATION
  Report Type: 
  Country: None (occurrence: None)
  Receive Date: 20070112
  Receipt Date: 20070102
  Transmission Date: 20070707
  Serious: Yes (Hospitalization, Disabling, Other)
  Sender: FDA-Public Use
  Company Number: GB-PFIZER INC-2006140287

PATIENT
  Age: 64 Year
  Sex: Female

DRUGS (1)
  1. PREDNISOLONE [Suspect]
     Indication: POST VIRAL FATIGUE SYNDROME
     Route: 048

REACTIONS (3)
  - CATARACT SUBCAPSULAR [None]
  - GLAUCOMA [None]
  - VISUAL ACUITY REDUCED [None]
